FAERS Safety Report 11539291 (Version 4)
Quarter: 2018Q4

REPORT INFORMATION
  Report Type: Spontaneous
  Country: US (occurrence: US)
  Receive Date: 20150923
  Receipt Date: 20181114
  Transmission Date: 20190204
  Serious: No
  Sender: FDA-Public Use
  Company Number: US-PFIZER INC-2015307587

PATIENT
  Age: 65 Year
  Sex: Male
  Weight: 84 kg

DRUGS (14)
  1. DULOXETINE. [Concomitant]
     Active Substance: DULOXETINE
     Dosage: 30 MG, DAILY (FOR 2 WEEKS)
  2. RANITIDINE. [Concomitant]
     Active Substance: RANITIDINE
     Dosage: UNK, DAILY
  3. VITAMIN B12 [Concomitant]
     Active Substance: CYANOCOBALAMIN
     Dosage: 1000 ?G, (EVERY 14 DAYS)
  4. DULOXETINE. [Concomitant]
     Active Substance: DULOXETINE
     Dosage: 60 MG, DAILY (FOR 2 WEEKS)
  5. TAMSULOSIN [Concomitant]
     Active Substance: TAMSULOSIN
     Dosage: 0.4 MG, 1X/DAY
  6. DONEPEZIL. [Concomitant]
     Active Substance: DONEPEZIL
     Dosage: 5 MG, 1X/DAY (HS)
     Route: 048
  7. LYRICA [Suspect]
     Active Substance: PREGABALIN
     Indication: NEUROPATHY PERIPHERAL
     Dosage: 450 MG, 2X/DAY (3 CAPSULES OF 150MG)
  8. DITROPAN [Concomitant]
     Active Substance: OXYBUTYNIN CHLORIDE
     Indication: DYSURIA
     Dosage: 5 MG, AS NEEDED (HS, PRN)
     Route: 048
  9. LYRICA [Suspect]
     Active Substance: PREGABALIN
     Indication: PAIN
     Dosage: 50 MG, 3X/DAY
     Route: 048
  10. FERROUS SULFATE. [Concomitant]
     Active Substance: FERROUS SULFATE
     Dosage: UNK
     Route: 048
  11. ASPIRIN. [Concomitant]
     Active Substance: ASPIRIN
     Dosage: 81 MG, DAILY
     Route: 048
  12. TRAMADOL. [Concomitant]
     Active Substance: TRAMADOL
     Indication: PAIN
     Dosage: 100 MG, AS NEEDED (TID)
     Route: 048
  13. FLOMAX [Concomitant]
     Active Substance: TAMSULOSIN HYDROCHLORIDE
     Dosage: 0.4 MG, DAILY
     Route: 048
  14. OXYBUTYNIN. [Concomitant]
     Active Substance: OXYBUTYNIN CHLORIDE
     Dosage: UNK

REACTIONS (5)
  - Anxiety [Unknown]
  - Chest pain [Unknown]
  - Myoclonus [Unknown]
  - Tremor [Unknown]
  - Prescribed overdose [Unknown]
